FAERS Safety Report 8663523 (Version 3)
Quarter: 2012Q4

REPORT INFORMATION
  Report Type: Report from Study
  Country: US (occurrence: US)
  Receive Date: 20120713
  Receipt Date: 20120830
  Transmission Date: 20130627
  Serious: Yes (Hospitalization, Other)
  Sender: FDA-Public Use
  Company Number: US-ABBOTT-12P-163-0953498-00

PATIENT
  Age: 21 None
  Sex: Male
  Weight: 86.26 kg

DRUGS (3)
  1. HUMIRA 40 MG/0.8 ML PEN [Suspect]
     Indication: CROHN^S DISEASE
     Dosage: (160 mg, loading dose)
     Dates: start: 20120531, end: 20120531
  2. HUMIRA 40 MG/0.8 ML PEN [Suspect]
     Dosage: (80 mg, second loading dose)
     Dates: start: 20120614, end: 20120614
  3. HUMIRA 40 MG/0.8 ML PEN [Suspect]

REACTIONS (6)
  - Pyrexia [Recovered/Resolved]
  - Abdominal abscess [Recovered/Resolved]
  - Ileostomy [Recovered/Resolved]
  - Renal impairment [Recovered/Resolved]
  - Ileal perforation [Unknown]
  - Retroperitoneal abscess [Unknown]
